FAERS Safety Report 24164288 (Version 2)
Quarter: 2024Q3

REPORT INFORMATION
  Report Type: Spontaneous
  Country: IE (occurrence: IE)
  Receive Date: 20240801
  Receipt Date: 20240902
  Transmission Date: 20241016
  Serious: Yes (Other)
  Sender: GUERBET
  Company Number: None

PATIENT
  Sex: Male

DRUGS (2)
  1. OPTIRAY [Suspect]
     Active Substance: IOVERSOL
     Indication: Product used for unknown indication
  2. OMNIPAQUE [Suspect]
     Active Substance: IOHEXOL
     Indication: Diagnostic procedure

REACTIONS (5)
  - Wound [Unknown]
  - Urticaria [Unknown]
  - Pruritus [Unknown]
  - Feeling hot [Unknown]
  - Erythema [Unknown]
